FAERS Safety Report 9841181 (Version 1)
Quarter: 2013Q4

REPORT INFORMATION
  Report Type: Spontaneous
  Country: US (occurrence: None)
  Receive Date: 20131223
  Receipt Date: 20131223
  Transmission Date: 20140711
  Serious: Yes (Other)
  Sender: FDA-Public Use
  Company Number: 217677LEO

PATIENT
  Age: 53 Year
  Sex: Female

DRUGS (1)
  1. PICATO [Suspect]
     Indication: ACTINIC KERATOSIS
     Route: 061
     Dates: start: 20120509, end: 20120510

REACTIONS (7)
  - Application site inflammation [None]
  - Application site pruritus [None]
  - Application site erythema [None]
  - Application site vesicles [None]
  - Feeling abnormal [None]
  - Insomnia [None]
  - Discomfort [None]
